FAERS Safety Report 12888974 (Version 2)
Quarter: 2016Q4

REPORT INFORMATION
  Report Type: Spontaneous
  Country: FR (occurrence: FR)
  Receive Date: 20161027
  Receipt Date: 20161102
  Transmission Date: 20170207
  Serious: Yes (Other)
  Sender: FDA-Public Use
  Company Number: FR-PFIZER INC-2016494633

PATIENT
  Age: 89 Year
  Sex: Female

DRUGS (1)
  1. CORDARONE [Suspect]
     Active Substance: AMIODARONE HYDROCHLORIDE
     Dosage: 100 MG, DAILY, (1/2 MORNING)
     Route: 048

REACTIONS (2)
  - Condition aggravated [Unknown]
  - Hypothyroidism [Unknown]

NARRATIVE: CASE EVENT DATE: 20160902
